FAERS Safety Report 4753543-5 (Version None)
Quarter: 2005Q3

REPORT INFORMATION
  Report Type: 
  Country: None (occurrence: None)
  Receive Date: 20050824
  Receipt Date: 20050812
  Transmission Date: 20060218
  Serious: Yes (Hospitalization, Disabling, Other)
  Sender: FDA-Public Use
  Company Number: ES-2005-005086

PATIENT
  Age: 30 Year
  Sex: Male
  Weight: 90 kg

DRUGS (1)
  1. BETASERON [Suspect]
     Indication: MULTIPLE SCLEROSIS
     Dosage: 8MIU, EVERY 2D, SUBCUTANEOUS
     Route: 058
     Dates: start: 20050220

REACTIONS (3)
  - ABSCESS LIMB [None]
  - CELLULITIS [None]
  - ERYTHEMA [None]
